FAERS Safety Report 23363421 (Version 1)
Quarter: 2024Q1

REPORT INFORMATION
  Report Type: Spontaneous
  Country: US (occurrence: US)
  Receive Date: 20240103
  Receipt Date: 20240103
  Transmission Date: 20240409
  Serious: Yes (Death, Hospitalization, Other)
  Sender: FDA-Public Use
  Company Number: US-Kiniksa Pharmaceuticals Ltd.-2023KPU000981

PATIENT
  Age: 51 Year
  Sex: Female

DRUGS (4)
  1. ARCALYST [Suspect]
     Active Substance: RILONACEPT
     Indication: Myocarditis
     Route: 058
     Dates: start: 20231003
  2. DOBUTAMINE [Concomitant]
     Active Substance: DOBUTAMINE HYDROCHLORIDE
     Indication: Product used for unknown indication
  3. METHYLPREDNISOLONE [Concomitant]
     Active Substance: METHYLPREDNISOLONE
     Indication: Product used for unknown indication
     Dates: start: 20230928, end: 20230930
  4. PREDNISONE [Concomitant]
     Active Substance: PREDNISONE
     Indication: Rheumatoid arthritis

REACTIONS (12)
  - Death [Fatal]
  - Cardiac arrest [Unknown]
  - Ventricular arrhythmia [Unknown]
  - Seizure [Unknown]
  - Cardiac failure acute [Unknown]
  - Left ventricular dysfunction [Unknown]
  - Pulmonary embolism [Unknown]
  - Cardiogenic shock [Unknown]
  - Hypoxia [Unknown]
  - Dyspnoea [Unknown]
  - Tachycardia [Unknown]
  - Off label use [Unknown]

NARRATIVE: CASE EVENT DATE: 20231001
